FAERS Safety Report 16316431 (Version 1)
Quarter: 2019Q2

REPORT INFORMATION
  Report Type: Spontaneous
  Country: ID (occurrence: ID)
  Receive Date: 20190515
  Receipt Date: 20190515
  Transmission Date: 20190711
  Serious: Yes (Other)
  Sender: FDA-Public Use
  Company Number: ID-GE HEALTHCARE LIFE SCIENCES-2019CSU002562

PATIENT

DRUGS (4)
  1. OMNIPAQUE [Suspect]
     Active Substance: IOHEXOL
     Indication: SKIN TEST
     Dosage: UNK
     Route: 023
     Dates: start: 20190423, end: 20190423
  2. OMNIPAQUE [Suspect]
     Active Substance: IOHEXOL
     Indication: COMPUTERISED TOMOGRAM
  3. OMNIPAQUE [Suspect]
     Active Substance: IOHEXOL
     Indication: MENINGITIS
     Dosage: 15 ML, SINGLE
     Route: 042
     Dates: start: 20190423, end: 20190423
  4. OMNIPAQUE [Suspect]
     Active Substance: IOHEXOL
     Indication: CONTRAST MEDIA ALLERGY

REACTIONS (2)
  - Chills [Recovered/Resolved]
  - Off label use [Recovered/Resolved]

NARRATIVE: CASE EVENT DATE: 20190423
